FAERS Safety Report 22670032 (Version 3)
Quarter: 2023Q4

REPORT INFORMATION
  Report Type: Other
  Country: CN (occurrence: None)
  Receive Date: 20230704
  Receipt Date: 20231225
  Transmission Date: 20240109
  Serious: Yes (Other)
  Sender: FDA-Public Use
  Company Number: CN-ROCHE-3378628

PATIENT

DRUGS (2)
  1. BEVACIZUMAB [Suspect]
     Active Substance: BEVACIZUMAB
     Indication: Nasopharyngeal cancer metastatic
     Dosage: FOR A MAXIMUM OF 24 MONTHS
     Route: 042
  2. SINTILIMAB [Suspect]
     Active Substance: SINTILIMAB
     Indication: Nasopharyngeal cancer metastatic
     Dosage: FOR A MAXIMUM OF 24 MONTHS
     Route: 042

REACTIONS (21)
  - Nasal necrosis [Unknown]
  - Hypertension [Unknown]
  - Pruritus [Unknown]
  - Gingival pain [Unknown]
  - Epistaxis [Unknown]
  - Otitis media [Unknown]
  - Dysphonia [Unknown]
  - Mucosal inflammation [Unknown]
  - Headache [Unknown]
  - Fatigue [Unknown]
  - Rash [Unknown]
  - Pneumonitis [Unknown]
  - Constipation [Unknown]
  - Proteinuria [Unknown]
  - Hypothyroidism [Unknown]
  - Anaemia [Unknown]
  - Neutropenia [Unknown]
  - Bilirubin conjugated increased [Unknown]
  - Blood alkaline phosphatase increased [Unknown]
  - Alanine aminotransferase increased [Unknown]
  - Aspartate aminotransferase increased [Unknown]
